FAERS Safety Report 7414310-7 (Version None)
Quarter: 2011Q2

REPORT INFORMATION
  Report Type: 
  Country: None (occurrence: None)
  Receive Date: 20110411
  Receipt Date: 20110411
  Transmission Date: 20111010
  Serious: Yes (Life-Threatening, Other)
  Sender: FDA-Public Use
  Company Number: None

PATIENT
  Age: 20 Year
  Sex: Male
  Weight: 63.5036 kg

DRUGS (1)
  1. CLARITHROMYCIN [Suspect]
     Indication: SINUSITIS
     Dosage: 1 TABLET EVERY 12 HOURS PO
     Route: 048
     Dates: start: 20110402, end: 20110403

REACTIONS (10)
  - ABNORMAL BEHAVIOUR [None]
  - DEPRESSION [None]
  - NIGHTMARE [None]
  - ANXIETY [None]
  - DEPERSONALISATION [None]
  - HALLUCINATION [None]
  - PSYCHOTIC DISORDER [None]
  - CONFUSIONAL STATE [None]
  - THINKING ABNORMAL [None]
  - MANIA [None]
